FAERS Safety Report 5073608-0 (Version None)
Quarter: 2006Q3

REPORT INFORMATION
  Report Type: 
  Country: None (occurrence: None)
  Receive Date: 20060808
  Receipt Date: 20060725
  Transmission Date: 20061208
  Serious: Yes (Life-Threatening)
  Sender: FDA-Public Use
  Company Number: GB-GLAXOSMITHKLINE-B0432597A

PATIENT
  Sex: Female

DRUGS (9)
  1. LITHIUM [Suspect]
     Indication: DEPRESSION
     Dosage: 200MG UNKNOWN
     Route: 048
     Dates: start: 20060526, end: 20060528
  2. MIRTAZAPINE [Suspect]
     Indication: DEPRESSION
     Route: 048
     Dates: start: 20060515, end: 20060528
  3. SERTRALINE [Suspect]
     Indication: DEPRESSION
     Dosage: 150MG UNKNOWN
     Route: 048
     Dates: start: 20060515, end: 20060528
  4. FELODIPINE [Concomitant]
     Route: 048
     Dates: start: 20060510
  5. FUROSEMIDE [Concomitant]
  6. LITHIUM CARBONATE [Concomitant]
     Indication: DEPRESSION
  7. LOSARTAN POSTASSIUM [Concomitant]
  8. MELOXICAM [Concomitant]
     Route: 048
     Dates: start: 20060510
  9. NEFOPAM [Concomitant]
     Dosage: 60MG PER DAY
     Route: 048
     Dates: start: 20060510

REACTIONS (7)
  - AGITATION [None]
  - CONFUSIONAL STATE [None]
  - CONVULSION [None]
  - HYPERHIDROSIS [None]
  - HYPERTENSION [None]
  - SEROTONIN SYNDROME [None]
  - TREMOR [None]
